FAERS Safety Report 25600453 (Version 2)
Quarter: 2025Q3

REPORT INFORMATION
  Report Type: Spontaneous
  Country: JP (occurrence: JP)
  Receive Date: 20250724
  Receipt Date: 20250812
  Transmission Date: 20251020
  Serious: Yes (Other)
  Sender: MYLAN
  Company Number: JP-VIATRISJAPAN-2025M1060694AA

PATIENT
  Age: 86 Year
  Sex: Male
  Weight: 74 kg

DRUGS (20)
  1. ANHIBA [Suspect]
     Active Substance: ACETAMINOPHEN
     Indication: Product used for unknown indication
  2. ANHIBA [Suspect]
     Active Substance: ACETAMINOPHEN
  3. ANHIBA [Suspect]
     Active Substance: ACETAMINOPHEN
     Route: 065
  4. ANHIBA [Suspect]
     Active Substance: ACETAMINOPHEN
     Route: 065
  5. ANHIBA [Suspect]
     Active Substance: ACETAMINOPHEN
  6. ANHIBA [Suspect]
     Active Substance: ACETAMINOPHEN
  7. ANHIBA [Suspect]
     Active Substance: ACETAMINOPHEN
     Route: 065
  8. ANHIBA [Suspect]
     Active Substance: ACETAMINOPHEN
     Route: 065
  9. CEFOTIAM [Suspect]
     Active Substance: CEFOTIAM
     Indication: Antibiotic prophylaxis
     Dosage: 1 GRAM, QD 36 DAYS BEFORE OPERATION
  10. CEFOTIAM [Suspect]
     Active Substance: CEFOTIAM
     Dosage: 1 GRAM, QD 36 DAYS BEFORE OPERATION
  11. CEFOTIAM [Suspect]
     Active Substance: CEFOTIAM
     Dosage: 1 GRAM, QD 36 DAYS BEFORE OPERATION
     Route: 065
  12. CEFOTIAM [Suspect]
     Active Substance: CEFOTIAM
     Dosage: 1 GRAM, QD 36 DAYS BEFORE OPERATION
     Route: 065
  13. CEFOTIAM [Suspect]
     Active Substance: CEFOTIAM
     Dosage: 1 GRAM, BID 35~34 DAYS BEFORE OPERATION
  14. CEFOTIAM [Suspect]
     Active Substance: CEFOTIAM
     Dosage: 1 GRAM, BID 35~34 DAYS BEFORE OPERATION
  15. CEFOTIAM [Suspect]
     Active Substance: CEFOTIAM
     Dosage: 1 GRAM, BID 35~34 DAYS BEFORE OPERATION
     Route: 065
  16. CEFOTIAM [Suspect]
     Active Substance: CEFOTIAM
     Dosage: 1 GRAM, BID 35~34 DAYS BEFORE OPERATION
     Route: 065
  17. CEFOTIAM [Suspect]
     Active Substance: CEFOTIAM
     Dosage: 1 GRAM, BID 0~4 DAYS AFTER OPERATION
  18. CEFOTIAM [Suspect]
     Active Substance: CEFOTIAM
     Dosage: 1 GRAM, BID 0~4 DAYS AFTER OPERATION
     Route: 065
  19. CEFOTIAM [Suspect]
     Active Substance: CEFOTIAM
     Dosage: 1 GRAM, BID 0~4 DAYS AFTER OPERATION
  20. CEFOTIAM [Suspect]
     Active Substance: CEFOTIAM
     Dosage: 1 GRAM, BID 0~4 DAYS AFTER OPERATION
     Route: 065

REACTIONS (1)
  - Thrombocytopenia [Recovered/Resolved]
